FAERS Safety Report 18038709 (Version 2)
Quarter: 2021Q2

REPORT INFORMATION
  Report Type: Spontaneous
  Country: DE (occurrence: DE)
  Receive Date: 20200717
  Receipt Date: 20210625
  Transmission Date: 20210717
  Serious: Yes (Other)
  Sender: FDA-Public Use
  Company Number: DE-PFIZER INC-2020271155

PATIENT
  Age: 34 Year
  Sex: Female

DRUGS (11)
  1. MESNA. [Suspect]
     Active Substance: MESNA
     Indication: BURKITT^S LYMPHOMA STAGE IV
     Dosage: 200 MG/M2 AT 0, 4, AND 8 HOURS AFTER CPA DAY 2 PRENATAL PHASE
     Route: 042
  2. CYCLOPHOSPHAMIDE. [Suspect]
     Active Substance: CYCLOPHOSPHAMIDE
     Indication: BURKITT^S LYMPHOMA STAGE IV
     Dosage: 750 MG/M2 OVER 1 HOUR ON DAY 2
     Route: 042
  3. CYTARABINE. [Suspect]
     Active Substance: CYTARABINE
     Dosage: 150 MG/M2 OVER 1 HOUR EVERY 12 HOURS ON DAYS 2?6 PRENATAL PHASE
     Route: 042
  4. CYTARABINE. [Suspect]
     Active Substance: CYTARABINE
     Indication: BURKITT^S LYMPHOMA STAGE IV
     Dosage: 40 MG ON DAYS 2 AND 6 PRENATAL PHASE
     Route: 037
  5. PREDNISOLONE. [Suspect]
     Active Substance: PREDNISOLONE
     Indication: BURKITT^S LYMPHOMA STAGE IV
     Dosage: 100 MG ON DAYS 2?5 PRENATAL PHASE
     Route: 048
  6. DEXAMETHASONE. [Suspect]
     Active Substance: DEXAMETHASONE
     Indication: BURKITT^S LYMPHOMA STAGE IV
     Dosage: 4 MG ON DAYS 2 AND 6 PRENATAL PHASE
     Route: 037
  7. FILGRASTIM [Suspect]
     Active Substance: FILGRASTIM
     Dosage: 10 UG/KG, ON DAYS 6?11 PRENATAL PHASE
     Route: 058
  8. DOXORUBICIN [Suspect]
     Active Substance: DOXORUBICIN
     Indication: BURKITT^S LYMPHOMA STAGE IV
     Dosage: 50 MG/M2 OVER 30 MINUTES ON DAY 2
     Route: 042
  9. ETOPOSIDE. [Suspect]
     Active Substance: ETOPOSIDE
     Indication: BURKITT^S LYMPHOMA STAGE IV
     Dosage: 100 MG/M2 OVER 1 HOUR ON DAYS 2?4 PRENATAL PHASE
     Route: 042
  10. RITUXIMAB. [Suspect]
     Active Substance: RITUXIMAB
     Indication: BURKITT^S LYMPHOMA STAGE IV
     Dosage: 375 MG/M2 OVER 3 HOURS ON DAY 1 PRENATAL PHASE
     Route: 042
  11. VINCRISTINE [Suspect]
     Active Substance: VINCRISTINE
     Indication: BURKITT^S LYMPHOMA STAGE IV
     Dosage: 2 MG ON DAY 2 PRENATAL PHASE
     Route: 040

REACTIONS (2)
  - Maternal exposure during pregnancy [Unknown]
  - Amniocentesis abnormal [Not Recovered/Not Resolved]
